FAERS Safety Report 14651449 (Version 12)
Quarter: 2018Q3

REPORT INFORMATION
  Report Type: Report from Study
  Country: CA (occurrence: CA)
  Receive Date: 20180316
  Receipt Date: 20180928
  Transmission Date: 20181010
  Serious: Yes (Other)
  Sender: FDA-Public Use
  Company Number: CA-BRISTOL-MYERS SQUIBB COMPANY-BMS-2017-023930

PATIENT
  Age: 47 Year
  Sex: Male

DRUGS (3)
  1. NIVOLUMAB [Suspect]
     Active Substance: NIVOLUMAB
     Indication: RENAL CELL CARCINOMA
     Dosage: 3 MG/KG (231MG), Q2WK
     Route: 042
     Dates: start: 20170303
  2. KEPPRA [Concomitant]
     Active Substance: LEVETIRACETAM
     Indication: PRODUCT USED FOR UNKNOWN INDICATION
     Dosage: UNK
     Route: 065
  3. TRAMACET [Concomitant]
     Active Substance: ACETAMINOPHEN\TRAMADOL
     Indication: PRODUCT USED FOR UNKNOWN INDICATION
     Dosage: UNK
     Route: 065

REACTIONS (22)
  - Fatigue [Unknown]
  - Back pain [Unknown]
  - Malaise [Unknown]
  - Dysphagia [Unknown]
  - Pyrexia [Not Recovered/Not Resolved]
  - Nausea [Unknown]
  - Constipation [Not Recovered/Not Resolved]
  - Anxiety disorder [Not Recovered/Not Resolved]
  - Cellulitis [Not Recovered/Not Resolved]
  - Pain [Unknown]
  - Dyspnoea [Not Recovered/Not Resolved]
  - Haemoglobin decreased [Recovering/Resolving]
  - General physical health deterioration [Unknown]
  - Oedema peripheral [Not Recovered/Not Resolved]
  - Increased appetite [Unknown]
  - Decreased appetite [Not Recovered/Not Resolved]
  - Brain neoplasm [Unknown]
  - Skin infection [Not Recovered/Not Resolved]
  - Depression [Not Recovered/Not Resolved]
  - Abdominal distension [Not Recovered/Not Resolved]
  - Euphoric mood [Not Recovered/Not Resolved]
  - Somnolence [Unknown]

NARRATIVE: CASE EVENT DATE: 20170303
